FAERS Safety Report 16951815 (Version 2)
Quarter: 2019Q4

REPORT INFORMATION
  Report Type: Spontaneous
  Country: US (occurrence: US)
  Receive Date: 20191023
  Receipt Date: 20191113
  Transmission Date: 20200122
  Serious: Yes (Other)
  Sender: FDA-Public Use
  Company Number: US-PFIZER INC-2019457161

PATIENT
  Age: 64 Year
  Sex: Male
  Weight: 81.63 kg

DRUGS (1)
  1. EMCYT [Suspect]
     Active Substance: ESTRAMUSTINE PHOSPHATE SODIUM
     Indication: NEOPLASM MALIGNANT
     Dosage: 420 MG, 3X/DAY[140 MG CAR 3 CAP 3 X DAILY]
     Dates: start: 20191019

REACTIONS (2)
  - Neoplasm progression [Not Recovered/Not Resolved]
  - Thrombosis [Unknown]

NARRATIVE: CASE EVENT DATE: 20191019
